FAERS Safety Report 12354243 (Version 1)
Quarter: 2016Q2

REPORT INFORMATION
  Report Type: Spontaneous
  Country: US (occurrence: None)
  Receive Date: 20160510
  Receipt Date: 20160510
  Transmission Date: 20160815
  Serious: No
  Sender: FDA-Public Use
  Company Number: None

PATIENT
  Age: 23 Year
  Sex: Female

DRUGS (1)
  1. CEFAZOLIN 10 GRAM POWDER VIAL HOSPIRA [Suspect]
     Active Substance: CEFAZOLIN SODIUM
     Indication: CELLULITIS
     Route: 042

REACTIONS (2)
  - Skin exfoliation [None]
  - Rash [None]

NARRATIVE: CASE EVENT DATE: 20160415
